FAERS Safety Report 19639195 (Version 1)
Quarter: 2021Q3

REPORT INFORMATION
  Report Type: Spontaneous
  Country: GB (occurrence: GB)
  Receive Date: 20210729
  Receipt Date: 20210729
  Transmission Date: 20211014
  Serious: Yes (Hospitalization, Other)
  Sender: FDA-Public Use
  Company Number: US-ALLERGAN-2127019US

PATIENT
  Sex: Male

DRUGS (1)
  1. BOTULINUM TOXIN TYPE A UNK [Suspect]
     Active Substance: BOTULINUM TOXIN TYPE A
     Indication: SKIN WRINKLING
     Dosage: UNK UNK, SINGLE

REACTIONS (8)
  - Skin lesion [Recovering/Resolving]
  - Prescription drug used without a prescription [Unknown]
  - Fat necrosis [Recovering/Resolving]
  - Face oedema [Recovering/Resolving]
  - Condition aggravated [Recovering/Resolving]
  - Purulent discharge [Recovering/Resolving]
  - Product administered by wrong person [Unknown]
  - Nodule [Recovering/Resolving]
